FAERS Safety Report 5779388-5 (Version None)
Quarter: 2008Q2

REPORT INFORMATION
  Report Type: 
  Country: None (occurrence: None)
  Receive Date: 20080601
  Receipt Date: 20080105
  Transmission Date: 20081010
  Serious: No
  Sender: FDA-Public Use
  Company Number: US200801001146

PATIENT
  Age: 78 Year
  Sex: Female
  Weight: 77.1 kg

DRUGS (3)
  1. BYETTA [Suspect]
     Indication: INSULIN-REQUIRING TYPE 2 DIABETES MELLITUS
     Dosage: SUBCUTANEOUS; 5 UG, DAILY (1/D), SUBCUTANEOUS
     Route: 058
     Dates: start: 20071231
  2. INSULIN (INSULIN) [Concomitant]
  3. GLYBURIDE [Concomitant]

REACTIONS (5)
  - BLOOD GLUCOSE DECREASED [None]
  - BLOOD GLUCOSE INCREASED [None]
  - DIZZINESS [None]
  - FEELING ABNORMAL [None]
  - MENTAL IMPAIRMENT [None]
